FAERS Safety Report 24425873 (Version 10)
Quarter: 2025Q3

REPORT INFORMATION
  Report Type: Report from Study
  Country: IL (occurrence: IL)
  Receive Date: 20241011
  Receipt Date: 20250923
  Transmission Date: 20251020
  Serious: Yes (Hospitalization, Other)
  Sender: ABBVIE
  Company Number: IL-ABBVIE-5956701

PATIENT
  Age: 30 Year
  Sex: Female

DRUGS (4)
  1. SKYRIZI [Suspect]
     Active Substance: RISANKIZUMAB-RZAA
     Indication: Crohn^s disease
     Dosage: FORM STRENGTH: 360 MILLIGRAM?LAST ADMIN DATE: 2024
     Route: 058
     Dates: start: 20240301
  2. SKYRIZI [Suspect]
     Active Substance: RISANKIZUMAB-RZAA
     Dosage: FORM STRENGTH: 360 MILLIGRAM?LAST ADMIN DATE: 2024
     Route: 058
     Dates: start: 20240701
  3. SKYRIZI [Suspect]
     Active Substance: RISANKIZUMAB-RZAA
     Dosage: FORM STRENGTH: 360 MILLIGRAM
     Route: 058
     Dates: end: 20241008
  4. SKYRIZI [Suspect]
     Active Substance: RISANKIZUMAB-RZAA
     Dosage: SKYRIZI 360MG
     Route: 058
     Dates: start: 2025

REACTIONS (13)
  - Gastrointestinal inflammation [Not Recovered/Not Resolved]
  - Drug ineffective [Unknown]
  - Stoma creation [Recovered/Resolved]
  - Injection site erythema [Recovering/Resolving]
  - Visual impairment [Unknown]
  - Stoma site infection [Unknown]
  - Injection site swelling [Recovering/Resolving]
  - Crohn^s disease [Recovering/Resolving]
  - Abdominal infection [Recovering/Resolving]
  - Pyrexia [Not Recovered/Not Resolved]
  - Intra-abdominal fluid collection [Unknown]
  - Stoma closure [Unknown]
  - Stoma site discharge [Unknown]

NARRATIVE: CASE EVENT DATE: 20240101
